FAERS Safety Report 4467221-3 (Version None)
Quarter: 2004Q4

REPORT INFORMATION
  Report Type: 
  Country: None (occurrence: None)
  Receive Date: 20041001
  Receipt Date: 20040916
  Transmission Date: 20050328
  Serious: Yes (Life-Threatening, Hospitalization)
  Sender: FDA-Public Use
  Company Number: 04-NIP00112

PATIENT
  Age: 81 Year
  Sex: Male

DRUGS (13)
  1. NIPENT [Suspect]
     Indication: CHRONIC LYMPHOCYTIC LEUKAEMIA
     Dosage: (Q21), INTRAVENOUS
     Route: 042
     Dates: start: 20040910
  2. CYTOXAN [Suspect]
     Indication: CHRONIC LYMPHOCYTIC LEUKAEMIA
     Dosage: (Q21), INTRAVENOUS
     Route: 042
     Dates: start: 20040910
  3. NEURONTIN [Concomitant]
  4. DIGOXIN [Concomitant]
  5. WARFARIN SODIUM [Concomitant]
  6. GLIPIZIDE [Concomitant]
  7. BENAZEPRIL HCL [Concomitant]
  8. POTASSIUM CHLORIDE [Concomitant]
  9. PREVACID [Concomitant]
  10. ALLOPURINOL [Concomitant]
  11. FUROSUMIDE [Concomitant]
  12. GLYBURIDE [Concomitant]
  13. DILTIAZEM [Concomitant]

REACTIONS (5)
  - ACUTE RESPIRATORY DISTRESS SYNDROME [None]
  - HYPOXIA [None]
  - RENAL FAILURE [None]
  - RESPIRATORY FAILURE [None]
  - SEPSIS [None]
